FAERS Safety Report 9203396 (Version 1)
Quarter: 2013Q1

REPORT INFORMATION
  Report Type: Spontaneous
  Country: US (occurrence: None)
  Receive Date: 20120709
  Receipt Date: 20120709
  Transmission Date: 20140127
  Serious: No
  Sender: FDA-Public Use
  Company Number: 2012HGS-003713

PATIENT
  Age: 58 Year
  Sex: Female
  Weight: 52.16 kg

DRUGS (11)
  1. BENLYSTA [Suspect]
     Indication: SYSTEMIC LUPUS ERYTHEMATOSUS
     Dosage: 1 IN 28 D, INTRAVENOUS DRIP
     Dates: start: 20120607
  2. PRILOSEC (OMEPRAZOLE)(OMEPRAZOLE) [Concomitant]
  3. LODINE (ETODOLAC) (ETODOLAC) [Concomitant]
     Dosage: 1 IN 1 D
  4. PLAQUENIL (HYDROXYCHLOROQUINE PHOSPHATE) (HYDROXYCHLOROQUINE PHOSPHATE) [Concomitant]
  5. GABAPENTIN 300 (GABAPENTIN) (GABAPENTIN) [Concomitant]
     Dosage: 5 IN 1 D
  6. KEPRA (LEVETIRACETAM) (LEVETIRACETAM) [Concomitant]
     Dosage: 3 IN 1D
  7. LORAREPAM (LORAZEPAM) (LORAZEPAM) [Concomitant]
     Dosage: 1 IN 1 D
  8. CYMBALTA (DULOXETINE HYDROCHLORIDE) (DULOXETINE HYDROCHLORIDE) [Concomitant]
     Dosage: 1 IN AM, 2 AT PM
  9. OXYCODONE (OXYCODONE) (OXYCODONE) [Concomitant]
     Dosage: AS REQUIRED
  10. DICYCLOMINE (DICYCLOVERINE) (DICYCLOVERINE) [Concomitant]
     Dosage: 2 IN 1 D
  11. ZANAFLEX (TIZANDINE HYDROCHLORIDE) (TIZANIDINE HYDROCHLORIDE) [Concomitant]
     Dosage: 1 AT BEDTIME

REACTIONS (2)
  - Rash pruritic [None]
  - Blister [None]
